FAERS Safety Report 8969578 (Version 1)
Quarter: 2012Q4

REPORT INFORMATION
  Report Type: 
  Country: US (occurrence: US)
  Receive Date: 20121218
  Receipt Date: 20121218
  Transmission Date: 20130627
  Serious: No
  Sender: FDA-Public Use
  Company Number: US-BRISTOL-MYERS SQUIBB COMPANY-16603789

PATIENT
  Sex: Female

DRUGS (2)
  1. ABILIFY [Suspect]
     Indication: PSYCHOTIC DISORDER
     Dosage: 1 dosage form: more than 20mg; less than 20 mg; 20 mg.
  2. ABILIFY [Suspect]
     Indication: DEPRESSION
     Dosage: 1 dosage form: more than 20mg; less than 20 mg; 20 mg.

REACTIONS (1)
  - Akathisia [Recovered/Resolved]
